FAERS Safety Report 6217109-2 (Version None)
Quarter: 2009Q2

REPORT INFORMATION
  Report Type: 
  Country: None (occurrence: None)
  Receive Date: 20090606
  Receipt Date: 20090529
  Transmission Date: 20091009
  Serious: Yes (Hospitalization)
  Sender: FDA-Public Use
  Company Number: US-PFIZER INC-2009186226

PATIENT
  Sex: Female
  Weight: 110 kg

DRUGS (9)
  1. NAPROXEN [Suspect]
     Indication: OSTEOARTHRITIS
     Dosage: UNK MG, TID
     Route: 048
     Dates: start: 20080223
  2. BLINDED *PLACEBO [Suspect]
     Indication: OSTEOARTHRITIS
     Dosage: UNK MG, TID
     Route: 048
     Dates: start: 20080223
  3. BLINDED CELECOXIB [Suspect]
     Indication: OSTEOARTHRITIS
     Dosage: UNK MG, TID
     Route: 048
     Dates: start: 20080223
  4. IBUPROFEN [Suspect]
     Indication: OSTEOARTHRITIS
     Dosage: UNK MG, TID
     Route: 048
     Dates: start: 20080223
  5. NAPROXEN [Suspect]
     Dosage: UNK MG, TID
     Route: 048
     Dates: start: 20080223
  6. SYNTHROID [Concomitant]
     Dosage: UNK
     Route: 048
     Dates: start: 19610101
  7. LASIX [Concomitant]
     Dosage: UNK
     Route: 048
     Dates: start: 20000101
  8. LIPITOR [Concomitant]
     Dosage: UNK
     Route: 048
     Dates: start: 20000101
  9. PRILOSEC [Concomitant]
     Dosage: UNK
     Route: 048
     Dates: start: 20000101

REACTIONS (2)
  - DEEP VEIN THROMBOSIS [None]
  - OSTEOARTHRITIS [None]
